FAERS Safety Report 7744933-7 (Version None)
Quarter: 2011Q3

REPORT INFORMATION
  Report Type: 
  Country: None (occurrence: None)
  Receive Date: 20110913
  Receipt Date: 20110907
  Transmission Date: 20111222
  Serious: Yes (Hospitalization, Other)
  Sender: FDA-Public Use
  Company Number: BE-BIOGENIDEC-2011BI034422

PATIENT
  Age: 41 Year
  Sex: Male

DRUGS (5)
  1. DULOXETIME HYDROCHLORIDE [Concomitant]
  2. TYSABRI [Suspect]
     Indication: RELAPSING-REMITTING MULTIPLE SCLEROSIS
     Route: 042
     Dates: start: 20101122, end: 20110904
  3. VERAPAMIL [Concomitant]
  4. TOPIRAMATE [Concomitant]
  5. VALPROATE SODIUM [Concomitant]

REACTIONS (1)
  - MIGRAINE [None]
